FAERS Safety Report 21224305 (Version 5)
Quarter: 2025Q2

REPORT INFORMATION
  Report Type: Report from Study
  Country: DE (occurrence: DE)
  Receive Date: 20220817
  Receipt Date: 20250428
  Transmission Date: 20250716
  Serious: Yes (Hospitalization, Other)
  Sender: MYLAN
  Company Number: DE-MYLANLABS-2022M1083572

PATIENT
  Age: 65 Year
  Sex: Female

DRUGS (72)
  1. METHOTREXATE [Suspect]
     Active Substance: METHOTREXATE
     Indication: Rheumatoid arthritis
     Route: 065
  2. METHOTREXATE [Suspect]
     Active Substance: METHOTREXATE
     Route: 065
  3. METHOTREXATE [Suspect]
     Active Substance: METHOTREXATE
  4. METHOTREXATE [Suspect]
     Active Substance: METHOTREXATE
  5. METHOTREXATE [Suspect]
     Active Substance: METHOTREXATE
     Route: 065
  6. METHOTREXATE [Suspect]
     Active Substance: METHOTREXATE
     Route: 065
  7. METHOTREXATE [Suspect]
     Active Substance: METHOTREXATE
  8. METHOTREXATE [Suspect]
     Active Substance: METHOTREXATE
  9. METHOTREXATE [Suspect]
     Active Substance: METHOTREXATE
     Route: 065
  10. METHOTREXATE [Suspect]
     Active Substance: METHOTREXATE
  11. METHOTREXATE [Suspect]
     Active Substance: METHOTREXATE
  12. METHOTREXATE [Suspect]
     Active Substance: METHOTREXATE
     Route: 065
  13. METHOTREXATE [Suspect]
     Active Substance: METHOTREXATE
  14. METHOTREXATE [Suspect]
     Active Substance: METHOTREXATE
  15. METHOTREXATE [Suspect]
     Active Substance: METHOTREXATE
     Route: 065
  16. METHOTREXATE [Suspect]
     Active Substance: METHOTREXATE
     Route: 065
  17. METHOTREXATE [Suspect]
     Active Substance: METHOTREXATE
     Route: 065
  18. METHOTREXATE [Suspect]
     Active Substance: METHOTREXATE
     Route: 065
  19. METHOTREXATE [Suspect]
     Active Substance: METHOTREXATE
  20. METHOTREXATE [Suspect]
     Active Substance: METHOTREXATE
  21. METHOTREXATE [Suspect]
     Active Substance: METHOTREXATE
     Route: 065
  22. METHOTREXATE [Suspect]
     Active Substance: METHOTREXATE
  23. METHOTREXATE [Suspect]
     Active Substance: METHOTREXATE
  24. METHOTREXATE [Suspect]
     Active Substance: METHOTREXATE
     Route: 065
  25. METHOTREXATE [Suspect]
     Active Substance: METHOTREXATE
     Route: 065
  26. METHOTREXATE [Suspect]
     Active Substance: METHOTREXATE
  27. METHOTREXATE [Suspect]
     Active Substance: METHOTREXATE
     Route: 065
  28. METHOTREXATE [Suspect]
     Active Substance: METHOTREXATE
  29. METHOTREXATE [Suspect]
     Active Substance: METHOTREXATE
     Route: 065
  30. METHOTREXATE [Suspect]
     Active Substance: METHOTREXATE
     Route: 065
  31. METHOTREXATE [Suspect]
     Active Substance: METHOTREXATE
  32. METHOTREXATE [Suspect]
     Active Substance: METHOTREXATE
  33. SIMPONI [Suspect]
     Active Substance: GOLIMUMAB
     Indication: Rheumatoid arthritis
  34. SIMPONI [Suspect]
     Active Substance: GOLIMUMAB
     Route: 065
  35. SIMPONI [Suspect]
     Active Substance: GOLIMUMAB
     Route: 065
  36. SIMPONI [Suspect]
     Active Substance: GOLIMUMAB
  37. ETANERCEPT [Suspect]
     Active Substance: ETANERCEPT
     Indication: Rheumatoid arthritis
  38. ETANERCEPT [Suspect]
     Active Substance: ETANERCEPT
  39. ETANERCEPT [Suspect]
     Active Substance: ETANERCEPT
     Route: 065
  40. ETANERCEPT [Suspect]
     Active Substance: ETANERCEPT
     Route: 065
  41. ETANERCEPT [Suspect]
     Active Substance: ETANERCEPT
  42. ETANERCEPT [Suspect]
     Active Substance: ETANERCEPT
  43. ETANERCEPT [Suspect]
     Active Substance: ETANERCEPT
     Route: 065
  44. ETANERCEPT [Suspect]
     Active Substance: ETANERCEPT
     Route: 065
  45. RINVOQ [Suspect]
     Active Substance: UPADACITINIB
     Indication: Rheumatoid arthritis
  46. RINVOQ [Suspect]
     Active Substance: UPADACITINIB
     Route: 048
  47. RINVOQ [Suspect]
     Active Substance: UPADACITINIB
     Route: 048
  48. RINVOQ [Suspect]
     Active Substance: UPADACITINIB
  49. ERELZI [Suspect]
     Active Substance: ETANERCEPT-SZZS
     Indication: Rheumatoid arthritis
     Route: 065
  50. ERELZI [Suspect]
     Active Substance: ETANERCEPT-SZZS
  51. ERELZI [Suspect]
     Active Substance: ETANERCEPT-SZZS
  52. ERELZI [Suspect]
     Active Substance: ETANERCEPT-SZZS
     Route: 065
  53. ERELZI [Suspect]
     Active Substance: ETANERCEPT-SZZS
     Route: 065
  54. ERELZI [Suspect]
     Active Substance: ETANERCEPT-SZZS
  55. ERELZI [Suspect]
     Active Substance: ETANERCEPT-SZZS
  56. ERELZI [Suspect]
     Active Substance: ETANERCEPT-SZZS
     Route: 065
  57. ERELZI [Suspect]
     Active Substance: ETANERCEPT-SZZS
  58. ERELZI [Suspect]
     Active Substance: ETANERCEPT-SZZS
  59. ERELZI [Suspect]
     Active Substance: ETANERCEPT-SZZS
     Route: 065
  60. ERELZI [Suspect]
     Active Substance: ETANERCEPT-SZZS
     Route: 065
  61. ERELZI [Suspect]
     Active Substance: ETANERCEPT-SZZS
  62. ERELZI [Suspect]
     Active Substance: ETANERCEPT-SZZS
  63. ERELZI [Suspect]
     Active Substance: ETANERCEPT-SZZS
     Route: 065
  64. ERELZI [Suspect]
     Active Substance: ETANERCEPT-SZZS
     Route: 065
  65. ORENCIA [Suspect]
     Active Substance: ABATACEPT
     Indication: Product used for unknown indication
  66. ORENCIA [Suspect]
     Active Substance: ABATACEPT
  67. ORENCIA [Suspect]
     Active Substance: ABATACEPT
     Route: 065
  68. ORENCIA [Suspect]
     Active Substance: ABATACEPT
     Route: 065
  69. ORENCIA [Suspect]
     Active Substance: ABATACEPT
  70. ORENCIA [Suspect]
     Active Substance: ABATACEPT
  71. ORENCIA [Suspect]
     Active Substance: ABATACEPT
     Route: 065
  72. ORENCIA [Suspect]
     Active Substance: ABATACEPT
     Route: 065

REACTIONS (14)
  - Pelvic floor muscle weakness [Not Recovered/Not Resolved]
  - Basal cell carcinoma [Unknown]
  - Cataract [Unknown]
  - Intervertebral disc protrusion [Recovered/Resolved]
  - Anal incontinence [Unknown]
  - Hypertension [Unknown]
  - Nausea [Unknown]
  - Gastrointestinal infection [Unknown]
  - Alopecia [Unknown]
  - Urinary tract infection [Unknown]
  - Bronchitis [Recovered/Resolved]
  - Constipation [Unknown]
  - Rheumatoid lung [Unknown]
  - Osteoarthritis [Unknown]

NARRATIVE: CASE EVENT DATE: 20170207
